FAERS Safety Report 4472583-7 (Version None)
Quarter: 2004Q4

REPORT INFORMATION
  Report Type: 
  Country: None (occurrence: None)
  Receive Date: 20041008
  Receipt Date: 20040917
  Transmission Date: 20050328
  Serious: Yes (Death, Hospitalization)
  Sender: FDA-Public Use
  Company Number: F01200400775

PATIENT
  Age: 61 Year
  Sex: Male

DRUGS (13)
  1. (OXALIPLATIN) - SOLUTION - 244 MG [Suspect]
     Indication: COLORECTAL CANCER METASTATIC
     Dosage: 244 MG Q3W INTRAVENOUS NOS - TIME TO ONSET : 2 WEEKS 3 DAYS
     Route: 042
     Dates: start: 20040312, end: 20040312
  2. (CAPECITABINE) - TABLET - 1800 MG [Suspect]
     Dosage: 1800 MG TWICE DAILY FROM D1 TO D14, Q3W, ORAL - TIME TO ONSET : 2 WEEKS 3 DAYS
     Route: 048
     Dates: start: 20040312
  3. ONDANSETRON [Concomitant]
  4. DECADRON [Concomitant]
  5. K-DUR 10 [Concomitant]
  6. FISH OIL CAPSULES (FISH OIL, HYDROGENATED) [Concomitant]
  7. CIPROFLOXACIN [Concomitant]
  8. TYLENOL [Concomitant]
  9. MULTI-VITAMINS [Concomitant]
  10. VITAMIN C [Concomitant]
  11. CODEINE [Concomitant]
  12. GARLIC TABLETS (GARLIC) [Concomitant]
  13. IMODIUM [Concomitant]

REACTIONS (30)
  - AORTIC ATHEROSCLEROSIS [None]
  - ASTHENIA [None]
  - BRADYCARDIA [None]
  - CARDIAC ARREST [None]
  - COLON CANCER METASTATIC [None]
  - CORONARY ARTERY ATHEROSCLEROSIS [None]
  - DEEP VEIN THROMBOSIS [None]
  - DEHYDRATION [None]
  - DIARRHOEA [None]
  - FEELING ABNORMAL [None]
  - FLANK PAIN [None]
  - FUNGAL INFECTION [None]
  - HYPERVENTILATION [None]
  - HYPOCOAGULABLE STATE [None]
  - HYPOTENSION [None]
  - INTESTINAL ISCHAEMIA [None]
  - MALIGNANT NEOPLASM PROGRESSION [None]
  - METABOLIC ACIDOSIS [None]
  - METASTASES TO KIDNEY [None]
  - METASTASES TO LARGE INTESTINE [None]
  - METASTASES TO LIVER [None]
  - METASTASES TO LUNG [None]
  - METASTASES TO SMALL INTESTINE [None]
  - NAUSEA [None]
  - PAIN EXACERBATED [None]
  - POST PROCEDURAL PAIN [None]
  - PULMONARY EMBOLISM [None]
  - RESPIRATORY DISORDER [None]
  - STAPHYLOCOCCAL INFECTION [None]
  - TACHYPNOEA [None]
